FAERS Safety Report 19160638 (Version 3)
Quarter: 2021Q4

REPORT INFORMATION
  Report Type: Spontaneous
  Country: ZA (occurrence: None)
  Receive Date: 20210420
  Receipt Date: 20211117
  Transmission Date: 20220303
  Serious: Yes (Other)
  Sender: FDA-Public Use
  Company Number: ZA-MERCK HEALTHCARE KGAA-9200276

PATIENT
  Age: 75 Year
  Sex: Female

DRUGS (6)
  1. EUTHYROX [Suspect]
     Active Substance: LEVOTHYROXINE SODIUM
     Indication: Hypothyroidism
     Route: 048
     Dates: start: 20180401, end: 20210413
  2. EUTHYROX [Suspect]
     Active Substance: LEVOTHYROXINE SODIUM
     Route: 048
     Dates: start: 2021
  3. LITHIUM [Concomitant]
     Active Substance: LITHIUM
     Indication: Product used for unknown indication
  4. LAMOTRIGINE [Concomitant]
     Active Substance: LAMOTRIGINE
     Indication: Product used for unknown indication
  5. WELLBUTRIN [Concomitant]
     Active Substance: BUPROPION HYDROCHLORIDE
     Indication: Depression
  6. BUPROPION HYDROCHLORIDE [Concomitant]
     Active Substance: BUPROPION HYDROCHLORIDE
     Indication: Product used for unknown indication

REACTIONS (12)
  - Renal failure [Unknown]
  - Constipation [Not Recovered/Not Resolved]
  - Skin wrinkling [Unknown]
  - Alopecia [Recovering/Resolving]
  - Dry skin [Not Recovered/Not Resolved]
  - Pigmentation disorder [Unknown]
  - Ephelides [Unknown]
  - Skin mass [Unknown]
  - Rash [Unknown]
  - Madarosis [Recovering/Resolving]
  - Onychoclasis [Unknown]
  - Neck mass [Unknown]
